FAERS Safety Report 19793485 (Version 1)
Quarter: 2021Q3

REPORT INFORMATION
  Report Type: Spontaneous
  Country: IN (occurrence: IN)
  Receive Date: 20210906
  Receipt Date: 20210906
  Transmission Date: 20211014
  Serious: Yes (Other)
  Sender: FDA-Public Use
  Company Number: NVSC2021IN151460

PATIENT
  Age: 60 Year
  Sex: Female

DRUGS (2)
  1. PAGENAX [Suspect]
     Active Substance: BROLUCIZUMAB
     Indication: DIABETIC RETINAL OEDEMA
     Dosage: 0.5 ML
     Route: 031
     Dates: start: 202106
  2. PAGENAX [Suspect]
     Active Substance: BROLUCIZUMAB
     Indication: CHOROIDAL NEOVASCULARISATION

REACTIONS (7)
  - Vitreous haze [Unknown]
  - Scleritis [Unknown]
  - Blindness [Unknown]
  - Scleral degeneration [Unknown]
  - Macular scar [Unknown]
  - Vitritis [Unknown]
  - Ocular hyperaemia [Unknown]

NARRATIVE: CASE EVENT DATE: 20210627
